FAERS Safety Report 10552320 (Version 4)
Quarter: 2016Q1

REPORT INFORMATION
  Report Type: Spontaneous
  Country: IT (occurrence: IT)
  Receive Date: 20141029
  Receipt Date: 20160212
  Transmission Date: 20160525
  Serious: Yes (Hospitalization)
  Sender: FDA-Public Use
  Company Number: IT-BRISTOL-MYERS SQUIBB COMPANY-21510888

PATIENT
  Age: 87 Year
  Sex: Female

DRUGS (4)
  1. COUMADIN [Suspect]
     Active Substance: WARFARIN SODIUM
     Indication: ATRIAL FIBRILLATION
     Dosage: LAST DOSE: 31MAR14
     Route: 065
     Dates: start: 20130331
  2. TAREG [Concomitant]
     Active Substance: VALSARTAN
     Indication: CARDIAC FAILURE
     Route: 065
  3. SOTALOL HYDROCHLORIDE. [Concomitant]
     Active Substance: SOTALOL HYDROCHLORIDE
     Indication: ATRIAL FIBRILLATION
     Route: 065
  4. EUTIROX [Concomitant]
     Active Substance: LEVOTHYROXINE SODIUM
     Indication: AUTOIMMUNE THYROIDITIS
     Route: 065

REACTIONS (7)
  - Decreased appetite [Unknown]
  - Overdose [Unknown]
  - Off label use [Unknown]
  - Dysphagia [Unknown]
  - Normochromic normocytic anaemia [Unknown]
  - Odynophagia [Unknown]
  - Haematuria [Unknown]

NARRATIVE: CASE EVENT DATE: 20140331
